FAERS Safety Report 21642068 (Version 2)
Quarter: 2022Q4

REPORT INFORMATION
  Report Type: Spontaneous
  Country: US (occurrence: US)
  Receive Date: 20221125
  Receipt Date: 20221210
  Transmission Date: 20230113
  Serious: Yes (Hospitalization, Other)
  Sender: FDA-Public Use
  Company Number: US-MLMSERVICE-20221107-3906908-1

PATIENT
  Age: 77 Year
  Sex: Male
  Weight: 83 kg

DRUGS (2)
  1. CIPROFLOXACIN [Suspect]
     Active Substance: CIPROFLOXACIN
     Indication: Antibiotic prophylaxis
     Dosage: 500 MILLIGRAM, TWO TIMES A DAY
     Route: 048
  2. AMOXICILLIN\CLAVULANIC ACID [Concomitant]
     Active Substance: AMOXICILLIN\CLAVULANIC ACID
     Indication: Antibiotic prophylaxis
     Dosage: 1 DOSAGE FORM, TWO TIMES A DAY ((875-125 MG TWICE DAILY)
     Route: 048

REACTIONS (3)
  - Necrotising soft tissue infection [Recovering/Resolving]
  - Stenotrophomonas infection [Recovering/Resolving]
  - Subcutaneous abscess [Recovering/Resolving]
